FAERS Safety Report 10186202 (Version 1)
Quarter: 2014Q2

REPORT INFORMATION
  Report Type: Spontaneous
  Country: US (occurrence: US)
  Receive Date: 20140521
  Receipt Date: 20140521
  Transmission Date: 20141212
  Serious: Yes (Other)
  Sender: FDA-Public Use
  Company Number: US-GLAXOSMITHKLINE-A1074066A

PATIENT
  Sex: Male

DRUGS (1)
  1. VENTOLIN [Suspect]
     Indication: PRODUCT USED FOR UNKNOWN INDICATION
     Route: 065

REACTIONS (8)
  - Choking [Unknown]
  - Sudden onset of sleep [Unknown]
  - Dyspnoea [Unknown]
  - Pain [Unknown]
  - Memory impairment [Unknown]
  - Productive cough [Unknown]
  - Local swelling [Unknown]
  - Fall [Unknown]
